FAERS Safety Report 14856610 (Version 1)
Quarter: 2018Q2

REPORT INFORMATION
  Report Type: Spontaneous
  Country: US (occurrence: US)
  Receive Date: 20180507
  Receipt Date: 20180507
  Transmission Date: 20180711
  Serious: No
  Sender: FDA-Public Use
  Company Number: US-ROCHE-2079810

PATIENT
  Age: 91 Year
  Sex: Male
  Weight: 54.48 kg

DRUGS (4)
  1. ESBRIET [Suspect]
     Active Substance: PIRFENIDONE
     Route: 065
     Dates: start: 201802
  2. ESBRIET [Suspect]
     Active Substance: PIRFENIDONE
     Indication: IDIOPATHIC PULMONARY FIBROSIS
     Route: 065
     Dates: start: 20180130
  3. ESBRIET [Suspect]
     Active Substance: PIRFENIDONE
     Route: 065
     Dates: start: 201802
  4. ESBRIET [Suspect]
     Active Substance: PIRFENIDONE
     Route: 065

REACTIONS (1)
  - Fatigue [Not Recovered/Not Resolved]

NARRATIVE: CASE EVENT DATE: 201802
